FAERS Safety Report 7287792-1 (Version None)
Quarter: 2011Q1

REPORT INFORMATION
  Report Type: 
  Country: None (occurrence: None)
  Receive Date: 20110211
  Receipt Date: 20110128
  Transmission Date: 20110831
  Serious: Yes (Hospitalization)
  Sender: FDA-Public Use
  Company Number: CH-BAYER-2011-004161

PATIENT
  Age: 59 Year
  Sex: Male

DRUGS (2)
  1. SORAFENIB (RAF KINASE INHIBITOR) [Suspect]
     Indication: RECTAL CANCER
     Dosage: 400 MG, QD
     Route: 048
     Dates: start: 20100923, end: 20101028
  2. CAPECITABINE [Suspect]
     Indication: RECTAL CANCER
     Dosage: 2300 MG, QD
     Route: 048
     Dates: start: 20100923, end: 20101028

REACTIONS (1)
  - GASTROINTESTINAL ANASTOMOTIC LEAK [None]
